FAERS Safety Report 5890453-4 (Version None)
Quarter: 2008Q3

REPORT INFORMATION
  Report Type: 
  Country: None (occurrence: None)
  Receive Date: 20080922
  Receipt Date: 20080909
  Transmission Date: 20090109
  Serious: Yes (Other)
  Sender: FDA-Public Use
  Company Number: IR-JNJFOC-20080903139

PATIENT
  Age: 42 Year
  Sex: Male

DRUGS (5)
  1. INFLIXIMAB [Suspect]
     Route: 042
  2. INFLIXIMAB [Suspect]
     Indication: BEHCET'S SYNDROME
     Dosage: AT WEK 2, 6, 12, AND 24
     Route: 042
  3. PREDNISOLONE [Concomitant]
     Indication: BEHCET'S SYNDROME
     Route: 048
  4. COLCHICINE [Concomitant]
     Indication: BEHCET'S SYNDROME
     Route: 048
  5. ASPIRIN [Concomitant]
     Indication: BEHCET'S SYNDROME
     Route: 048

REACTIONS (3)
  - BEHCET'S SYNDROME [None]
  - HERPES ZOSTER [None]
  - THERAPEUTIC RESPONSE DECREASED [None]
